FAERS Safety Report 9261663 (Version 5)
Quarter: 2017Q1

REPORT INFORMATION
  Report Type: Spontaneous
  Country: US (occurrence: US)
  Receive Date: 20130429
  Receipt Date: 20170309
  Transmission Date: 20170429
  Serious: Yes (Hospitalization, Other)
  Sender: FDA-Public Use
  Company Number: US-PFIZER INC-2013131780

PATIENT
  Age: 45 Year
  Sex: Female
  Weight: 52 kg

DRUGS (15)
  1. LYRICA [Suspect]
     Active Substance: PREGABALIN
     Indication: NEUROPATHY PERIPHERAL
  2. SOMA [Concomitant]
     Active Substance: CARISOPRODOL
     Dosage: UNK
  3. HYDROMORPHONE [Concomitant]
     Active Substance: HYDROMORPHONE
     Indication: PAIN
     Dosage: AS NEEDED (1/2 TO 1 TABLET (S) EVERY 6 HOURS)
     Route: 048
  4. KLONOPIN [Concomitant]
     Active Substance: CLONAZEPAM
     Dosage: UNK
  5. PROAIR HFA [Concomitant]
     Active Substance: ALBUTEROL SULFATE
     Dosage: 90 MCG/ACTUATION, INHALE 2 PUFFS EVERY 4 HOURS AS NEEDED
     Route: 055
  6. LORATADINE. [Concomitant]
     Active Substance: LORATADINE
     Dosage: 10 MG, 2X/DAY
  7. FENTANYL. [Concomitant]
     Active Substance: FENTANYL
     Dosage: 75 MCG/HR, APPLY 1 PATCH Q 48 HOURS
     Route: 062
  8. CELLCEPT [Concomitant]
     Active Substance: MYCOPHENOLATE MOFETIL\MYCOPHENOLATE MOFETIL HYDROCHLORIDE
     Dosage: UNK
  9. MYCOPHENOLATE MOFETIL. [Concomitant]
     Active Substance: MYCOPHENOLATE MOFETIL
     Dosage: 1000 MG, 2X/DAY [TAKE 2 TABLETS]
     Route: 048
  10. LYRICA [Suspect]
     Active Substance: PREGABALIN
     Indication: FIBROMYALGIA
     Dosage: 200 MG, 3X/DAY [2 CAPSULES TWICE DAILY]
     Route: 048
  11. LYRICA [Suspect]
     Active Substance: PREGABALIN
     Indication: NERVE INJURY
  12. CLONAZEPAM. [Concomitant]
     Active Substance: CLONAZEPAM
     Dosage: 1 MG, AS NEEDED [TAKE 1/2 QID PRN]
     Route: 048
  13. PERCOCET [Concomitant]
     Active Substance: ACETAMINOPHEN\OXYCODONE HYDROCHLORIDE
     Dosage: UNK
  14. DOCQLACE [Concomitant]
     Active Substance: DOCUSATE SODIUM
     Dosage: 100 MG, AS NEEDED
  15. AZITHROMYCIN ANHYDROUS. [Concomitant]
     Active Substance: AZITHROMYCIN ANHYDROUS
     Dosage: 250 MG, UNK

REACTIONS (18)
  - Brain injury [Unknown]
  - Insomnia [Unknown]
  - Condition aggravated [Unknown]
  - Depression [Unknown]
  - Walking aid user [Unknown]
  - Tremor [Unknown]
  - Eating disorder [Unknown]
  - Renal disorder [Unknown]
  - Meningitis [Unknown]
  - Encephalitis [Unknown]
  - Systemic lupus erythematosus [Unknown]
  - Apparent death [Unknown]
  - Immunosuppression [Unknown]
  - Musculoskeletal stiffness [Unknown]
  - Meningitis meningococcal [Unknown]
  - Coma [Unknown]
  - Rheumatoid arthritis [Unknown]
  - Feeling abnormal [Unknown]

NARRATIVE: CASE EVENT DATE: 201106
